FAERS Safety Report 24132057 (Version 1)
Quarter: 2024Q3

REPORT INFORMATION
  Report Type: Spontaneous
  Country: US (occurrence: US)
  Receive Date: 20240724
  Receipt Date: 20240724
  Transmission Date: 20241016
  Serious: Yes (Hospitalization, Other)
  Sender: CHEPLAPHARM
  Company Number: US-CHEPLA-2024009249

PATIENT
  Sex: Male

DRUGS (2)
  1. OLANZAPINE [Suspect]
     Active Substance: OLANZAPINE
     Indication: Decreased appetite
     Dates: start: 202406
  2. LENVIMA [Suspect]
     Active Substance: LENVATINIB
     Indication: Hepatocellular carcinoma
     Dosage: DAILY DOSE: 8 MILLIGRAM
     Dates: start: 202308, end: 202406

REACTIONS (3)
  - Hepatic failure [Recovered/Resolved]
  - Renal failure [Unknown]
  - Off label use [Unknown]
